FAERS Safety Report 18126584 (Version 1)
Quarter: 2020Q3

REPORT INFORMATION
  Report Type: Spontaneous
  Country: PL (occurrence: PL)
  Receive Date: 20200809
  Receipt Date: 20200809
  Transmission Date: 20201103
  Serious: Yes (Death)
  Sender: FDA-Public Use
  Company Number: PL-B.I. PHARMACEUTICALS,INC./RIDGEFIELD-2020-BI-040284

PATIENT
  Age: 69 Year
  Sex: Male
  Weight: 70 kg

DRUGS (3)
  1. LIPANTHYL [Concomitant]
     Active Substance: FENOFIBRATE
     Indication: HYPERLIPIDAEMIA
     Route: 048
     Dates: start: 2008
  2. OFEV [Suspect]
     Active Substance: NINTEDANIB
     Indication: IDIOPATHIC PULMONARY FIBROSIS
     Route: 048
     Dates: end: 20200715
  3. TRITACE [Concomitant]
     Active Substance: RAMIPRIL
     Indication: HYPERTENSION
     Route: 048
     Dates: start: 2008

REACTIONS (4)
  - Liver injury [Fatal]
  - Cardiac failure [Fatal]
  - Respiratory failure [Fatal]
  - Arrhythmia [Fatal]

NARRATIVE: CASE EVENT DATE: 20200715
